FAERS Safety Report 13674973 (Version 1)
Quarter: 2017Q2

REPORT INFORMATION
  Report Type: Spontaneous
  Country: US (occurrence: US)
  Receive Date: 20170621
  Receipt Date: 20170621
  Transmission Date: 20170830
  Serious: No
  Sender: FDA-Public Use
  Company Number: US-PFIZER INC-2017266999

PATIENT

DRUGS (1)
  1. LATANOPROST. [Suspect]
     Active Substance: LATANOPROST
     Dosage: OPHTHALMIC SOLUTION
     Route: 047

REACTIONS (3)
  - Foreign body sensation in eyes [Unknown]
  - Eye pruritus [Unknown]
  - Vision blurred [Unknown]
